FAERS Safety Report 25395629 (Version 1)
Quarter: 2025Q2

REPORT INFORMATION
  Report Type: Spontaneous
  Country: US (occurrence: US)
  Receive Date: 20250604
  Receipt Date: 20250604
  Transmission Date: 20250717
  Serious: No
  Sender: ROCHE
  Company Number: US-ROCHE-10000302075

PATIENT
  Sex: Male
  Weight: 87.09 kg

DRUGS (2)
  1. HEMLIBRA [Suspect]
     Active Substance: EMICIZUMAB-KXWH
     Indication: Factor VIII deficiency
     Dosage: EVERY 7 DAY FOR 4 WEEK?STRENGTH: 105/ 0.7ML
     Route: 058
     Dates: start: 20250423
  2. HEMLIBRA [Suspect]
     Active Substance: EMICIZUMAB-KXWH
     Dosage: EVERY 7 DAY FOR 4 WEEK?STRENGTH: 150/ ML
     Route: 058
     Dates: start: 20250423

REACTIONS (3)
  - Off label use [Unknown]
  - Food poisoning [Unknown]
  - Haemorrhage [Unknown]
